FAERS Safety Report 7607076-9 (Version None)
Quarter: 2011Q3

REPORT INFORMATION
  Report Type: 
  Country: None (occurrence: None)
  Receive Date: 20110713
  Receipt Date: 20110630
  Transmission Date: 20111222
  Serious: Yes (Other)
  Sender: FDA-Public Use
  Company Number: US-UCBSA-036094

PATIENT
  Age: 42 Year
  Sex: Female

DRUGS (3)
  1. VIMPAT [Suspect]
     Dosage: GRADUAL INCREASE
  2. KEPPRA [Suspect]
     Dosage: 1500-1500
  3. VIMPAT [Suspect]
     Dosage: 100 MG

REACTIONS (6)
  - INSOMNIA [None]
  - CONVULSION [None]
  - DYSARTHRIA [None]
  - DYSPHEMIA [None]
  - DECREASED APPETITE [None]
  - FATIGUE [None]
